FAERS Safety Report 7563221-5 (Version None)
Quarter: 2011Q2

REPORT INFORMATION
  Report Type: 
  Country: None (occurrence: None)
  Receive Date: 20110615
  Receipt Date: 20110606
  Transmission Date: 20111010
  Serious: Yes (Hospitalization)
  Sender: FDA-Public Use
  Company Number: 2011122317

PATIENT
  Sex: Female

DRUGS (1)
  1. FRAGMIN [Suspect]
     Dosage: 5000 IU, SUBCUTANEOUS
     Route: 058
     Dates: start: 20110501

REACTIONS (1)
  - KNEE ARTHROPLASTY [None]
